FAERS Safety Report 6168839-2 (Version None)
Quarter: 2009Q2

REPORT INFORMATION
  Report Type: 
  Country: None (occurrence: None)
  Receive Date: 20090424
  Receipt Date: 20090424
  Transmission Date: 20091009
  Serious: Yes (Other)
  Sender: FDA-Public Use
  Company Number: None

PATIENT
  Age: 56 Year
  Sex: Female
  Weight: 101.4243 kg

DRUGS (2)
  1. HYDROCHLOROTHIAZIDE [Suspect]
     Indication: DIURETIC THERAPY
     Dosage: TAKE 1 CAPSULE 1 TO 2 CAPSULES DAILY PO
     Route: 048
     Dates: start: 20090414, end: 20090415
  2. HYDROCHLOROTHIAZIDE [Suspect]
     Indication: SWELLING
     Dosage: TAKE 1 CAPSULE 1 TO 2 CAPSULES DAILY PO
     Route: 048
     Dates: start: 20090414, end: 20090415

REACTIONS (3)
  - CHROMATURIA [None]
  - LABORATORY TEST ABNORMAL [None]
  - URINE ANALYSIS ABNORMAL [None]
